FAERS Safety Report 9217419 (Version 1)
Quarter: 2013Q2

REPORT INFORMATION
  Report Type: Spontaneous
  Country: US (occurrence: US)
  Receive Date: 20130408
  Receipt Date: 20130408
  Transmission Date: 20140414
  Serious: No
  Sender: FDA-Public Use
  Company Number: US-PFIZER INC-2013107866

PATIENT
  Age: 56 Year
  Sex: Male
  Weight: 124.72 kg

DRUGS (1)
  1. LIPITOR [Suspect]

REACTIONS (1)
  - Drug hypersensitivity [Unknown]
